FAERS Safety Report 4647368-9 (Version None)
Quarter: 2005Q2

REPORT INFORMATION
  Report Type: 
  Country: None (occurrence: None)
  Receive Date: 20050427
  Receipt Date: 20050427
  Transmission Date: 20051028
  Serious: Yes (Death)
  Sender: FDA-Public Use
  Company Number: None

PATIENT
  Sex: Male

DRUGS (1)
  1. RAPAMYCIN 5MG/PO/QD [Suspect]
     Indication: PANCREATIC CARCINOMA
     Dosage: 500MG QD ORAL
     Route: 048
     Dates: start: 20050105, end: 20050224

REACTIONS (2)
  - MALIGNANT NEOPLASM PROGRESSION [None]
  - PANCREATIC CARCINOMA [None]
